FAERS Safety Report 6347219-0 (Version None)
Quarter: 2009Q3

REPORT INFORMATION
  Report Type: 
  Country: None (occurrence: None)
  Receive Date: 20090910
  Receipt Date: 20090829
  Transmission Date: 20100115
  Serious: Yes (Death)
  Sender: FDA-Public Use
  Company Number: JP-ROCHE-654472

PATIENT
  Age: 38 Year
  Sex: Female

DRUGS (2)
  1. TAMIFLU [Suspect]
     Indication: INFLUENZA
     Dosage: DOSE FORM REPORTED: ORAL FORMULATION (NOT OTHERWISE SPECIFIED)
     Route: 048
  2. ANTIEPILEPTIC [Concomitant]

REACTIONS (1)
  - ACUTE RESPIRATORY FAILURE [None]
